FAERS Safety Report 25914063 (Version 1)
Quarter: 2025Q4

REPORT INFORMATION
  Report Type: Spontaneous
  Country: CH (occurrence: CH)
  Receive Date: 20251013
  Receipt Date: 20251013
  Transmission Date: 20260118
  Serious: Yes (Other)
  Sender: PFIZER
  Company Number: CH-PFIZER INC-202500200508

PATIENT
  Age: 37 Year
  Sex: Female

DRUGS (5)
  1. SOLU-MEDROL [Suspect]
     Active Substance: METHYLPREDNISOLONE SODIUM SUCCINATE
     Indication: Prophylaxis of nausea and vomiting
     Dosage: 125 MG, EVERY 2 WEEKS
     Route: 042
     Dates: start: 20250106, end: 20250217
  2. DOXORUBICIN HYDROCHLORIDE [Suspect]
     Active Substance: DOXORUBICIN HYDROCHLORIDE
     Indication: Breast cancer metastatic
     Dosage: 100 MG, EVERY 2 WEEKS
     Route: 042
     Dates: start: 20250106, end: 20250217
  3. CYCLOPHOSPHAMIDE [Suspect]
     Active Substance: CYCLOPHOSPHAMIDE
     Indication: Breast cancer metastatic
     Dosage: 1000 MG, EVERY 2 WEEKS
     Route: 042
     Dates: start: 20250106, end: 20250217
  4. ONDANSETRON [Concomitant]
     Active Substance: ONDANSETRON
     Indication: Prophylaxis of nausea and vomiting
     Dosage: 8 MG, EVERY 2 WEEKS
     Route: 042
     Dates: start: 20250106, end: 20250217
  5. FILGRASTIM [Concomitant]
     Active Substance: FILGRASTIM
     Dosage: 30 10*6.[IU], 1X/DAY, ON DAYS 8-12
     Route: 058
     Dates: start: 20250113, end: 20250117

REACTIONS (3)
  - Exposure during pregnancy [Recovered/Resolved]
  - Amniotic cavity infection [Recovered/Resolved]
  - Off label use [Unknown]

NARRATIVE: CASE EVENT DATE: 20250106
